FAERS Safety Report 21063183 (Version 1)
Quarter: 2022Q3

REPORT INFORMATION
  Report Type: Spontaneous
  Country: LK (occurrence: LK)
  Receive Date: 20220711
  Receipt Date: 20220711
  Transmission Date: 20221026
  Serious: Yes (Hospitalization, Other)
  Sender: FDA-Public Use
  Company Number: LK-SUN PHARMACEUTICAL INDUSTRIES LTD-2022R1-343498

PATIENT
  Age: 62 Year
  Sex: Male

DRUGS (1)
  1. DEXAMETHASONE [Suspect]
     Active Substance: DEXAMETHASONE
     Indication: Rhinitis allergic
     Dosage: 2 DOSAGE FORM(1 MG), BID
     Route: 048
     Dates: end: 202011

REACTIONS (2)
  - Adrenal insufficiency [Recovering/Resolving]
  - Hypercalcaemia [Recovering/Resolving]
